FAERS Safety Report 12645738 (Version 1)
Quarter: 2016Q3

REPORT INFORMATION
  Report Type: Spontaneous
  Country: US (occurrence: US)
  Receive Date: 20160811
  Receipt Date: 20160811
  Transmission Date: 20161109
  Serious: Yes (Other)
  Sender: FDA-Public Use
  Company Number: US-ASTRAZENECA-2016SE85332

PATIENT
  Sex: Female

DRUGS (6)
  1. MEMELON [Concomitant]
  2. DILANTIN [Suspect]
     Active Substance: PHENYTOIN
     Route: 065
  3. KLONIPIN [Concomitant]
     Active Substance: CLONAZEPAM
  4. KEPPRA [Concomitant]
     Active Substance: LEVETIRACETAM
  5. PRILOSEC [Suspect]
     Active Substance: OMEPRAZOLE MAGNESIUM
     Route: 048
  6. LAMICTAL [Concomitant]
     Active Substance: LAMOTRIGINE

REACTIONS (1)
  - Generalised tonic-clonic seizure [Unknown]
